FAERS Safety Report 21175891 (Version 1)
Quarter: 2022Q3

REPORT INFORMATION
  Report Type: Other
  Country: CA (occurrence: None)
  Receive Date: 20220805
  Receipt Date: 20220805
  Transmission Date: 20221026
  Serious: Yes (Other)
  Sender: FDA-Public Use
  Company Number: CA-ROCHE-3151079

PATIENT
  Sex: Female

DRUGS (6)
  1. ACTEMRA [Suspect]
     Active Substance: TOCILIZUMAB
     Indication: Rheumatoid arthritis
     Dosage: ONGOING
     Route: 042
     Dates: start: 20211020
  2. ERELZI [Concomitant]
     Active Substance: ETANERCEPT-SZZS
  3. HERBAL SUPPLEMENTS (UNK INGREDIENTS) [Concomitant]
  4. OMEGA 3 [Concomitant]
     Active Substance: CAPSAICIN
  5. PREDNISONE [Concomitant]
     Active Substance: PREDNISONE
  6. TYLENOL [Concomitant]
     Active Substance: ACETAMINOPHEN

REACTIONS (1)
  - Pancytopenia [Unknown]
